FAERS Safety Report 4496572-1 (Version None)
Quarter: 2004Q4

REPORT INFORMATION
  Report Type: 
  Country: None (occurrence: None)
  Receive Date: 20041102
  Receipt Date: 20041019
  Transmission Date: 20050328
  Serious: Yes (Death)
  Sender: FDA-Public Use
  Company Number: B0349371A

PATIENT
  Age: 84 Year
  Sex: Male

DRUGS (4)
  1. PAXIL [Suspect]
     Dosage: 20 MG/PER DAY/ORAL
     Route: 048
     Dates: start: 19911201
  2. TEMAZEPAM [Concomitant]
  3. NIFEDIPINE [Concomitant]
  4. FRUMIL [Concomitant]

REACTIONS (7)
  - COMPLETED SUICIDE [None]
  - CONFUSIONAL STATE [None]
  - FALL [None]
  - GENERAL PHYSICAL HEALTH DETERIORATION [None]
  - MORBID THOUGHTS [None]
  - SUBDURAL HAEMATOMA [None]
  - SUDDEN DEATH [None]
